FAERS Safety Report 4436716-0 (Version None)
Quarter: 2004Q3

REPORT INFORMATION
  Report Type: 
  Country: None (occurrence: None)
  Receive Date: 20040726
  Receipt Date: 20040305
  Transmission Date: 20050211
  Serious: No
  Sender: FDA-Public Use
  Company Number: USA040361095

PATIENT
  Age: 78 Year
  Sex: Female

DRUGS (1)
  1. FORTEO [Suspect]
     Indication: OSTEOPOROSIS
     Dosage: 20 UG DAY
     Dates: start: 20040305

REACTIONS (5)
  - ASTHENIA [None]
  - COLD SWEAT [None]
  - HEART RATE INCREASED [None]
  - NAUSEA [None]
  - VISUAL DISTURBANCE [None]
